FAERS Safety Report 8072893-0 (Version None)
Quarter: 2012Q1

REPORT INFORMATION
  Report Type: 
  Country: None (occurrence: None)
  Receive Date: 20120120
  Receipt Date: 20120109
  Transmission Date: 20120608
  Serious: Yes (Hospitalization, Other)
  Sender: FDA-Public Use
  Company Number: 2012MA000658

PATIENT
  Age: 64 Year
  Sex: Male
  Weight: 95 kg

DRUGS (31)
  1. AMOXICILLIN [Concomitant]
  2. FUROSEMIDE [Concomitant]
  3. FINASTERIDE [Concomitant]
  4. FUROSEMIDE [Concomitant]
  5. PANTOPRAZOLE [Concomitant]
  6. DIGOXIN [Concomitant]
  7. METFORMIN HCL [Concomitant]
  8. MOMETASONE FUROATE [Concomitant]
  9. ASPIRIN [Concomitant]
  10. TERAZOSIN HCL [Concomitant]
  11. SPIRONOLACTONE [Concomitant]
  12. OMEPRAZOLE [Concomitant]
  13. AMLODIPINE [Concomitant]
  14. CLOPIDOGREL [Concomitant]
  15. METOPROLOL TARTRATE [Concomitant]
  16. HYDROCHLOROTHIAZIDE [Concomitant]
  17. DILTIAZEM HYDROCHLORIDE [Suspect]
     Indication: CARDIAC DISORDER
     Dosage: 30 MG, Q6H
  18. CLARITHROMYCIN [Concomitant]
  19. GLIPIZIDE [Concomitant]
  20. ASPIRIN [Concomitant]
  21. DOCUSATE SODIUM [Concomitant]
  22. PRAVASTATIN [Concomitant]
  23. ACARBOSE [Concomitant]
  24. LISINOPRIL [Concomitant]
  25. SIMVASTATIN [Concomitant]
  26. POLYETHYLENE GLYCOL SOLUTION [Concomitant]
  27. IPPRATROPUM BROMIDE [Concomitant]
  28. GLYBURIDE [Concomitant]
  29. OMEGA-3 FATTY ACID [Concomitant]
  30. METFORMIN HCL [Concomitant]
  31. ISOSORBIDE MONONITRATE [Concomitant]

REACTIONS (16)
  - NAUSEA [None]
  - GASTROINTESTINAL SOUNDS ABNORMAL [None]
  - ILEUS PARALYTIC [None]
  - ATRIAL FIBRILLATION [None]
  - THYROXINE FREE DECREASED [None]
  - EPISTAXIS [None]
  - VOMITING [None]
  - INTESTINAL DILATATION [None]
  - DYSPNOEA [None]
  - HAEMATOCRIT DECREASED [None]
  - ABDOMINAL PAIN [None]
  - BLOOD THYROID STIMULATING HORMONE DECREASED [None]
  - UPPER GASTROINTESTINAL HAEMORRHAGE [None]
  - CONSTIPATION [None]
  - WHEEZING [None]
  - HAEMOGLOBIN DECREASED [None]
